FAERS Safety Report 6746674-1 (Version None)
Quarter: 2010Q2

REPORT INFORMATION
  Report Type: 
  Country: None (occurrence: None)
  Receive Date: 20100526
  Receipt Date: 20100513
  Transmission Date: 20101027
  Serious: Yes (Other)
  Sender: FDA-Public Use
  Company Number: 593153

PATIENT
  Age: 48 Year
  Sex: Female
  Weight: 100 kg

DRUGS (3)
  1. OXALIPLATIN [Suspect]
  2. (CORTICOSTEROIDS) [Suspect]
  3. MIRENA [Suspect]
     Dosage: INTRAUTERINE
     Route: 015
     Dates: start: 20090301

REACTIONS (2)
  - COLON CANCER [None]
  - VAGINAL DISCHARGE [None]
